FAERS Safety Report 10901889 (Version 1)
Quarter: 2015Q1

REPORT INFORMATION
  Report Type: Spontaneous
  Country: US (occurrence: US)
  Receive Date: 20150310
  Receipt Date: 20150310
  Transmission Date: 20150721
  Serious: Yes (Hospitalization)
  Sender: FDA-Public Use
  Company Number: US-GLAXOSMITHKLINE-US2015030464

PATIENT
  Age: 63 Year
  Sex: Female

DRUGS (10)
  1. CITALOPRAM [Concomitant]
     Active Substance: CITALOPRAM HYDROBROMIDE
  2. CELECOXIB. [Concomitant]
     Active Substance: CELECOXIB
  3. FLOVENT [Suspect]
     Active Substance: FLUTICASONE PROPIONATE
     Indication: CHRONIC OBSTRUCTIVE PULMONARY DISEASE
     Dosage: 2 PUFF(S), QD
     Route: 055
     Dates: start: 201402
  4. PROAIR HFA [Concomitant]
     Active Substance: ALBUTEROL SULFATE
  5. ASPIRIN (BABY) [Concomitant]
  6. PRAVASTATIN [Concomitant]
     Active Substance: PRAVASTATIN\PRAVASTATIN SODIUM
  7. OMEPRAZOLE. [Concomitant]
     Active Substance: OMEPRAZOLE
  8. BREO ELLIPTA [Concomitant]
     Active Substance: FLUTICASONE FUROATE\VILANTEROL TRIFENATATE
  9. CALTRATE [Concomitant]
     Active Substance: CALCIUM CARBONATE
  10. SPIRIVA [Suspect]
     Active Substance: TIOTROPIUM BROMIDE MONOHYDRATE
     Indication: CHRONIC OBSTRUCTIVE PULMONARY DISEASE
     Dosage: 1 PUFF(S), QD
     Route: 055
     Dates: start: 2011

REACTIONS (6)
  - Chronic obstructive pulmonary disease [Recovered/Resolved]
  - Expired product administered [Unknown]
  - Candida infection [Recovered/Resolved]
  - Oral discomfort [Recovered/Resolved]
  - Malaise [Recovered/Resolved]
  - Device use error [Unknown]

NARRATIVE: CASE EVENT DATE: 201402
